FAERS Safety Report 9590395 (Version 1)
Quarter: 2013Q4

REPORT INFORMATION
  Report Type: Spontaneous
  Country: US (occurrence: US)
  Receive Date: 20131003
  Receipt Date: 20131003
  Transmission Date: 20140711
  Serious: No
  Sender: FDA-Public Use
  Company Number: US-AMGEN-USASP2012077046

PATIENT
  Age: 41 Year
  Sex: Female
  Weight: 46.26 kg

DRUGS (6)
  1. ENBREL [Suspect]
     Indication: PRODUCT USED FOR UNKNOWN INDICATION
     Dosage: 25 MG, 2 TIMES/WK
     Route: 058
  2. PREDNISONE [Concomitant]
     Dosage: UNK
  3. SYNTHROID [Concomitant]
     Dosage: 100 MUG, UNK
     Route: 048
  4. FLONASE [Concomitant]
     Dosage: 0.05 %, UNK
  5. PREVACID [Concomitant]
     Dosage: 15 MG, UNK
     Route: 048
  6. ALLEGRA ALLERGY [Concomitant]
     Dosage: 30 MG, UNK
     Route: 048

REACTIONS (1)
  - Pneumonia [Unknown]
